FAERS Safety Report 9601810 (Version 1)
Quarter: 2013Q4

REPORT INFORMATION
  Report Type: Spontaneous
  Country: GB (occurrence: None)
  Receive Date: 20131002
  Receipt Date: 20131002
  Transmission Date: 20140711
  Serious: Yes (Hospitalization)
  Sender: FDA-Public Use
  Company Number: AUR-APL-2013-07966

PATIENT
  Age: 2 Year
  Sex: Female
  Weight: 12.3 kg

DRUGS (1)
  1. AMOXICILLIN [Suspect]
     Indication: OTITIS MEDIA

REACTIONS (3)
  - Agitation [None]
  - Aggression [None]
  - Abnormal behaviour [None]
